FAERS Safety Report 17484114 (Version 1)
Quarter: 2020Q1

REPORT INFORMATION
  Report Type: Spontaneous
  Country: US (occurrence: US)
  Receive Date: 20200219
  Receipt Date: 20200219
  Transmission Date: 20200409
  Serious: Yes (Hospitalization)
  Sender: FDA-Public Use
  Company Number: None

PATIENT
  Age: 70 Year
  Sex: Male

DRUGS (9)
  1. OMEPRAZOLE. [Concomitant]
     Active Substance: OMEPRAZOLE
  2. ESBRIET [Suspect]
     Active Substance: PIRFENIDONE
     Indication: IDIOPATHIC PULMONARY FIBROSIS
     Dosage: ?          OTHER DOSE:3 CAPSULES;?
     Route: 048
     Dates: start: 20151012
  3. CARVEDILOL. [Concomitant]
     Active Substance: CARVEDILOL
  4. FOLIC ACID. [Concomitant]
     Active Substance: FOLIC ACID
  5. METOPROLOL. [Concomitant]
     Active Substance: METOPROLOL
  6. SULFASALAZINE. [Concomitant]
     Active Substance: SULFASALAZINE
  7. LOVASTATIN. [Concomitant]
     Active Substance: LOVASTATIN
  8. FLUTICASONE. [Concomitant]
     Active Substance: FLUTICASONE
  9. ELIQUIS [Concomitant]
     Active Substance: APIXABAN

REACTIONS (3)
  - Pneumonia [None]
  - Oxygen saturation decreased [None]
  - Therapy cessation [None]

NARRATIVE: CASE EVENT DATE: 20200215
